FAERS Safety Report 22344504 (Version 1)
Quarter: 2023Q2

REPORT INFORMATION
  Report Type: Spontaneous
  Country: US (occurrence: US)
  Receive Date: 20230519
  Receipt Date: 20230519
  Transmission Date: 20230722
  Serious: No
  Sender: FDA-Public Use
  Company Number: US-BAYER-2023A068248

PATIENT
  Age: 53 Year
  Sex: Male

DRUGS (24)
  1. ADEMPAS [Suspect]
     Active Substance: RIOCIGUAT
     Indication: Pulmonary hypertension
     Dosage: 2.5 MG, TID
     Route: 048
     Dates: start: 20210702
  2. OPSUMIT [Suspect]
     Active Substance: MACITENTAN
     Indication: Pulmonary hypertension
  3. MORPHINE [Concomitant]
     Active Substance: MORPHINE
  4. DULOXETINE [Concomitant]
     Active Substance: DULOXETINE
  5. ENOXAPARIN [Concomitant]
     Active Substance: ENOXAPARIN
  6. WARFARIN [Concomitant]
     Active Substance: WARFARIN
  7. CIPRO [Concomitant]
     Active Substance: CIPROFLOXACIN HYDROCHLORIDE
  8. OXYCODONE [Concomitant]
     Active Substance: OXYCODONE
  9. DIPHENHYDRAMINE [Concomitant]
     Active Substance: DIPHENHYDRAMINE
  10. GABAPENTIN [Concomitant]
     Active Substance: GABAPENTIN
  11. LAMOTRIGINE [Concomitant]
     Active Substance: LAMOTRIGINE
  12. TORSEMIDE [Concomitant]
     Active Substance: TORSEMIDE
  13. SPIRONOLACTONE [Concomitant]
     Active Substance: SPIRONOLACTONE
  14. NARCAN [Concomitant]
     Active Substance: NALOXONE HYDROCHLORIDE
  15. AMOXICILLIN [Concomitant]
     Active Substance: AMOXICILLIN
  16. TYLENOL [Concomitant]
     Active Substance: ACETAMINOPHEN
  17. LITHIUM [Concomitant]
     Active Substance: LITHIUM
  18. CARBONATE [Concomitant]
  19. LIDOCAINE [Concomitant]
     Active Substance: LIDOCAINE
     Dosage: UNK
  20. NYSTATIN [Concomitant]
     Active Substance: NYSTATIN
     Dosage: UNK
  21. PREDNISONE [Concomitant]
     Active Substance: PREDNISONE
  22. MELATONIN [Concomitant]
     Active Substance: MELATONIN
  23. RISPERIDONE [Concomitant]
     Active Substance: RISPERIDONE
  24. VITAMINS [Concomitant]
     Active Substance: VITAMINS

REACTIONS (2)
  - Speech disorder [None]
  - Essential tremor [None]
